FAERS Safety Report 7216837-X (Version None)
Quarter: 2011Q1

REPORT INFORMATION
  Report Type: 
  Country: None (occurrence: None)
  Receive Date: 20110110
  Receipt Date: 20110104
  Transmission Date: 20110831
  Serious: No
  Sender: FDA-Public Use
  Company Number: US-BIOGENIDEC-2011BI000305

PATIENT
  Sex: Female

DRUGS (1)
  1. AVONEX [Suspect]
     Indication: MULTIPLE SCLEROSIS
     Route: 030
     Dates: start: 20071201, end: 20101101

REACTIONS (8)
  - MUSCULOSKELETAL DISORDER [None]
  - URINARY INCONTINENCE [None]
  - FALL [None]
  - SENSATION OF HEAVINESS [None]
  - DRUG SPECIFIC ANTIBODY PRESENT [None]
  - PAIN [None]
  - INFLUENZA LIKE ILLNESS [None]
  - MUSCLE SPASMS [None]
